FAERS Safety Report 20990798 (Version 3)
Quarter: 2022Q4

REPORT INFORMATION
  Report Type: Spontaneous
  Country: ES (occurrence: ES)
  Receive Date: 20220622
  Receipt Date: 20221013
  Transmission Date: 20230113
  Serious: Yes (Other)
  Sender: FDA-Public Use
  Company Number: ES-ELI_LILLY_AND_COMPANY-ES202205005095

PATIENT
  Age: 73 Year
  Sex: Female

DRUGS (4)
  1. LETROZOLE [Suspect]
     Active Substance: LETROZOLE
     Indication: Product used for unknown indication
     Dosage: UNK
     Route: 065
  2. ABEMACICLIB [Suspect]
     Active Substance: ABEMACICLIB
     Indication: Hormone receptor positive HER2 negative breast cancer
     Dosage: 100 MILLIGRAM
     Route: 048
     Dates: start: 202206
  3. ABEMACICLIB [Suspect]
     Active Substance: ABEMACICLIB
     Dosage: 150 MILLIGRAM
     Route: 048
     Dates: start: 20210408, end: 202206
  4. ABEMACICLIB [Suspect]
     Active Substance: ABEMACICLIB
     Dosage: 100 MILLIGRAM
     Route: 048

REACTIONS (6)
  - Renal impairment [Not Recovered/Not Resolved]
  - Blood creatinine increased [Not Recovered/Not Resolved]
  - Diarrhoea [Recovered/Resolved]
  - Lymphadenitis [Recovered/Resolved]
  - Pruritus [Not Recovered/Not Resolved]
  - Osteoporosis [Not Recovered/Not Resolved]
